FAERS Safety Report 8244958-1 (Version None)
Quarter: 2012Q1

REPORT INFORMATION
  Report Type: 
  Country: None (occurrence: None)
  Receive Date: 20120329
  Receipt Date: 20111014
  Transmission Date: 20120608
  Serious: No
  Sender: FDA-Public Use
  Company Number: US-MYLANLABS-2011S1021628

PATIENT
  Age: 64 Year
  Sex: Female

DRUGS (4)
  1. FENTANYL-100 [Suspect]
     Dosage: CHANGED Q72H
     Route: 062
     Dates: start: 20111012
  2. FENTANYL-100 [Suspect]
     Indication: PAIN
     Dosage: QOD
     Route: 062
     Dates: start: 20110901, end: 20111011
  3. PERCOCET [Concomitant]
     Indication: BREAKTHROUGH PAIN
     Dosage: 1-4 TABLETS EVERY DAY AS NEEDED
     Route: 048
  4. PHENERGAN HCL [Suspect]
     Indication: NAUSEA
     Route: 048
     Dates: start: 20110922, end: 20110928

REACTIONS (6)
  - WEIGHT DECREASED [None]
  - HYPERTENSION [None]
  - HEART RATE INCREASED [None]
  - NAUSEA [None]
  - BREAKTHROUGH PAIN [None]
  - PALPITATIONS [None]
